FAERS Safety Report 5919767-6 (Version None)
Quarter: 2008Q4

REPORT INFORMATION
  Report Type: 
  Country: None (occurrence: None)
  Receive Date: 20081015
  Receipt Date: 20081005
  Transmission Date: 20090506
  Serious: Yes (Other)
  Sender: FDA-Public Use
  Company Number: DZ-PFIZER INC-2008084151

PATIENT
  Age: 55 Year
  Sex: Female

DRUGS (2)
  1. SERTRALINE [Suspect]
     Indication: MAJOR DEPRESSION
     Route: 048
     Dates: start: 20080706, end: 20080922
  2. PRAZEPAM [Concomitant]

REACTIONS (1)
  - LOCALISED OEDEMA [None]
